FAERS Safety Report 11341574 (Version 3)
Quarter: 2015Q3

REPORT INFORMATION
  Report Type: Spontaneous
  Country: FR (occurrence: FR)
  Receive Date: 20150805
  Receipt Date: 20150924
  Transmission Date: 20151125
  Serious: Yes (Other)
  Sender: FDA-Public Use
  Company Number: FR-B.I. PHARMACEUTICALS,INC./RIDGEFIELD-2015-BI-28729YA

PATIENT
  Age: 72 Year
  Sex: Male

DRUGS (8)
  1. ORBENINE [Suspect]
     Active Substance: CLOXACILLIN SODIUM
     Dosage: 3 G
     Route: 048
  2. ORBENINE [Suspect]
     Active Substance: CLOXACILLIN SODIUM
     Dosage: 6 G
     Route: 042
  3. NEURONTIN [Concomitant]
     Active Substance: GABAPENTIN
     Indication: PRODUCT USED FOR UNKNOWN INDICATION
     Route: 065
  4. JOSIR [Suspect]
     Active Substance: TAMSULOSIN
     Indication: PRODUCT USED FOR UNKNOWN INDICATION
     Dosage: LP
     Route: 065
  5. INEXIUM [Concomitant]
     Active Substance: ESOMEPRAZOLE
     Indication: PRODUCT USED FOR UNKNOWN INDICATION
     Route: 065
  6. RENITEC [Concomitant]
     Active Substance: ENALAPRIL MALEATE
     Indication: PRODUCT USED FOR UNKNOWN INDICATION
     Route: 065
  7. CELLCEPT [Concomitant]
     Active Substance: MYCOPHENOLATE MOFETIL\MYCOPHENOLATE MOFETIL HYDROCHLORIDE
     Indication: PRODUCT USED FOR UNKNOWN INDICATION
     Route: 065
  8. ORBENINE [Suspect]
     Active Substance: CLOXACILLIN SODIUM
     Indication: ERYSIPELAS
     Dosage: 6 G
     Route: 048
     Dates: start: 20150521, end: 20150521

REACTIONS (4)
  - Acute kidney injury [Recovered/Resolved]
  - Bladder disorder [Unknown]
  - Intentional product misuse [Unknown]
  - Overdose [Unknown]
